FAERS Safety Report 8545195-3 (Version None)
Quarter: 2012Q3

REPORT INFORMATION
  Report Type: 
  Country: None (occurrence: None)
  Receive Date: 20120719
  Receipt Date: 20120719
  Transmission Date: 20120928
  Serious: No
  Sender: FDA-Public Use
  Company Number: None

PATIENT
  Age: 62 Year
  Sex: Male
  Weight: 62.8 kg

DRUGS (1)
  1. CIPRO IN DEXTROSE 5% [Suspect]
     Indication: URINARY TRACT INFECTION
     Dosage: MG
     Dates: start: 20120306, end: 20120306

REACTIONS (2)
  - PHLEBITIS [None]
  - ERYTHEMA [None]
